FAERS Safety Report 6447726-6 (Version None)
Quarter: 2009Q4

REPORT INFORMATION
  Report Type: 
  Country: None (occurrence: None)
  Receive Date: 20091120
  Receipt Date: 20091112
  Transmission Date: 20100525
  Serious: Yes (Hospitalization)
  Sender: FDA-Public Use
  Company Number: US-BIOGENIDEC-2005BI022479

PATIENT
  Age: 41 Year
  Sex: Female
  Weight: 75 kg

DRUGS (5)
  1. AVONEX [Suspect]
     Indication: MULTIPLE SCLEROSIS
     Route: 030
     Dates: start: 19960101, end: 20030801
  2. AVONEX [Suspect]
     Route: 030
     Dates: start: 20030801, end: 20031101
  3. AVONEX [Suspect]
     Route: 030
     Dates: start: 20050101
  4. TYLENOL (CAPLET) [Concomitant]
     Indication: PREMEDICATION
  5. FLURBIPROFEN [Concomitant]
     Indication: MIGRAINE

REACTIONS (14)
  - ASTHENIA [None]
  - BALANCE DISORDER [None]
  - CYTOMEGALOVIRUS INFECTION [None]
  - GAIT DISTURBANCE [None]
  - INFLAMMATION [None]
  - INFLUENZA LIKE ILLNESS [None]
  - MALAISE [None]
  - MULTIPLE SCLEROSIS [None]
  - MULTIPLE SCLEROSIS RELAPSE [None]
  - MUSCULAR WEAKNESS [None]
  - PERONEAL NERVE PALSY [None]
  - PNEUMONIA [None]
  - SINUSITIS [None]
  - STAPHYLOCOCCAL INFECTION [None]
